FAERS Safety Report 9852146 (Version 3)
Quarter: 2015Q2

REPORT INFORMATION
  Report Type: Spontaneous
  Country: US (occurrence: US)
  Receive Date: 20140129
  Receipt Date: 20150520
  Transmission Date: 20150821
  Serious: Yes (Hospitalization, Other)
  Sender: FDA-Public Use
  Company Number: US-ASTRAZENECA-2014SE05201

PATIENT
  Age: 24406 Day
  Sex: Female

DRUGS (20)
  1. NEXIUM [Suspect]
     Active Substance: ESOMEPRAZOLE MAGNESIUM
     Route: 048
     Dates: start: 20121222
  2. VISTARIL [Concomitant]
     Active Substance: HYDROXYZINE PAMOATE
     Indication: PRURITUS
     Route: 048
     Dates: start: 20130213
  3. CRESTOR [Concomitant]
     Active Substance: ROSUVASTATIN CALCIUM
     Indication: HYPOLIPIDAEMIA
     Route: 048
     Dates: start: 20100104
  4. HYDROCODONE HOMATROPINE [Concomitant]
     Indication: PAIN
     Dosage: 5-1.5 MG/5 ML, 10 ML EVERY 6 HOURS AS NEEDED
     Route: 048
     Dates: start: 20130213
  5. PROMETHAZINE HCL [Concomitant]
     Active Substance: PROMETHAZINE HYDROCHLORIDE
     Indication: NAUSEA
     Route: 048
     Dates: start: 20130213
  6. ASPIRIN. [Concomitant]
     Active Substance: ASPIRIN
     Indication: DRUG HYPERSENSITIVITY
     Route: 048
     Dates: start: 20100104
  7. NEXIUM [Suspect]
     Active Substance: ESOMEPRAZOLE MAGNESIUM
     Route: 048
     Dates: start: 20050519
  8. FLEXERIL [Concomitant]
     Active Substance: CYCLOBENZAPRINE HYDROCHLORIDE
     Indication: MUSCULOSKELETAL DISORDER
     Route: 048
     Dates: start: 20130213
  9. FLEXERIL [Concomitant]
     Active Substance: CYCLOBENZAPRINE HYDROCHLORIDE
     Indication: MUSCLE SPASMS
     Route: 048
     Dates: start: 20130213
  10. CYMBALTA [Concomitant]
     Active Substance: DULOXETINE HYDROCHLORIDE
     Indication: ANTIDEPRESSANT THERAPY
     Route: 048
     Dates: start: 20100104
  11. VITAMIN C [Concomitant]
     Active Substance: ASCORBIC ACID
     Route: 048
     Dates: start: 20130213
  12. ZINC SULFATE [Concomitant]
     Active Substance: ZINC SULFATE\ZINC SULFATE ANHYDROUS
     Indication: SUPPLEMENTATION THERAPY
     Route: 048
     Dates: start: 20130213
  13. HYDROCODONE HOMATROPINE [Concomitant]
     Indication: COUGH
     Dosage: 5-1.5 MG/5 ML, 10 ML EVERY 6 HOURS AS NEEDED
     Route: 048
     Dates: start: 20130213
  14. ESTRADIOL. [Concomitant]
     Active Substance: ESTRADIOL
     Indication: OESTROGEN THERAPY
     Route: 048
     Dates: start: 20100104
  15. ZINC SULFATE [Concomitant]
     Active Substance: ZINC SULFATE\ZINC SULFATE ANHYDROUS
     Indication: MINERAL SUPPLEMENTATION
     Route: 048
     Dates: start: 20130213
  16. HYDROCODONE HOMATROPINE [Concomitant]
     Indication: HYPERSENSITIVITY
     Dosage: 5-1.5 MG/5 ML, 10 ML EVERY 6 HOURS AS NEEDED
     Route: 048
     Dates: start: 20130213
  17. NEXIUM [Suspect]
     Active Substance: ESOMEPRAZOLE MAGNESIUM
     Route: 048
     Dates: start: 2004, end: 201301
  18. HYDROCODONE HOMATROPINE [Concomitant]
     Indication: NASOPHARYNGITIS
     Dosage: 5-1.5 MG/5 ML, 10 ML EVERY 6 HOURS AS NEEDED
     Route: 048
     Dates: start: 20130213
  19. PROMETHAZINE HCL [Concomitant]
     Active Substance: PROMETHAZINE HYDROCHLORIDE
     Indication: ANTIALLERGIC THERAPY
     Route: 048
     Dates: start: 20130213
  20. NEXIUM [Suspect]
     Active Substance: ESOMEPRAZOLE MAGNESIUM
     Route: 048

REACTIONS (5)
  - Septic shock [Unknown]
  - Clostridium difficile colitis [Unknown]
  - Clostridium difficile infection [Unknown]
  - Colitis ischaemic [Unknown]
  - Megacolon [Unknown]

NARRATIVE: CASE EVENT DATE: 20130108
